FAERS Safety Report 18629103 (Version 1)
Quarter: 2020Q4

REPORT INFORMATION
  Report Type: Spontaneous
  Country: US (occurrence: US)
  Receive Date: 20201217
  Receipt Date: 20201217
  Transmission Date: 20210114
  Serious: Yes (Other)
  Sender: FDA-Public Use
  Company Number: US-LUNDBECK-DKLU3025288

PATIENT
  Age: 80 Year
  Sex: Male
  Weight: 64 kg

DRUGS (1)
  1. NORTHERA [Suspect]
     Active Substance: DROXIDOPA
     Indication: PARKINSON^S DISEASE
     Route: 048
     Dates: start: 20201202

REACTIONS (8)
  - General physical health deterioration [Not Recovered/Not Resolved]
  - Aggression [Not Recovered/Not Resolved]
  - Hallucination [Not Recovered/Not Resolved]
  - Delirium [Not Recovered/Not Resolved]
  - Eating disorder [Not Recovered/Not Resolved]
  - Speech disorder [Not Recovered/Not Resolved]
  - Sitting disability [Not Recovered/Not Resolved]
  - Restlessness [Not Recovered/Not Resolved]

NARRATIVE: CASE EVENT DATE: 20201207
